FAERS Safety Report 22044897 (Version 2)
Quarter: 2023Q1

REPORT INFORMATION
  Report Type: Spontaneous
  Country: US (occurrence: US)
  Receive Date: 20230228
  Receipt Date: 20230303
  Transmission Date: 20230418
  Serious: Yes (Other)
  Sender: FDA-Public Use
  Company Number: US-SANOFI-01501932

PATIENT

DRUGS (1)
  1. ACT RESTORING ANTICAVITY FLUORIDE COOL MINT [Suspect]
     Active Substance: SODIUM FLUORIDE
     Dosage: UNK

REACTIONS (1)
  - Choking [Unknown]
